FAERS Safety Report 11749165 (Version 1)
Quarter: 2015Q4

REPORT INFORMATION
  Report Type: Spontaneous
  Country: US (occurrence: None)
  Receive Date: 20151117
  Receipt Date: 20151117
  Transmission Date: 20160304
  Serious: Yes (Hospitalization, Disabling, Other)
  Sender: FDA-Public Use
  Company Number: None

PATIENT
  Age: 72 Year
  Sex: Male
  Weight: 97.52 kg

DRUGS (10)
  1. BENYDRYL [Concomitant]
  2. OXYBUTENIN [Concomitant]
  3. MULTI VITAMINS [Concomitant]
  4. ZOLOFT [Concomitant]
     Active Substance: SERTRALINE HYDROCHLORIDE
  5. LISINIPRIL [Concomitant]
  6. VITAMIN C [Concomitant]
     Active Substance: ASCORBIC ACID
  7. SIMVISTATIN [Concomitant]
     Active Substance: SIMVASTATIN
  8. CALCIUM [Concomitant]
     Active Substance: CALCIUM
  9. DILANTIN [Suspect]
     Active Substance: PHENYTOIN
     Indication: SEIZURE
     Route: 048
     Dates: start: 20151015, end: 20151029
  10. SUDAPHED [Concomitant]

REACTIONS (4)
  - Drug level decreased [None]
  - Generalised tonic-clonic seizure [None]
  - Joint injury [None]
  - Aspiration [None]

NARRATIVE: CASE EVENT DATE: 20151029
